FAERS Safety Report 25251432 (Version 1)
Quarter: 2025Q2

REPORT INFORMATION
  Report Type: Spontaneous
  Country: US (occurrence: US)
  Receive Date: 20250429
  Receipt Date: 20250429
  Transmission Date: 20250716
  Serious: Yes (Hospitalization)
  Sender: TEIKOKU
  Company Number: US-TPU-TPU-2025-00170

PATIENT
  Age: 55 Year
  Sex: Female
  Weight: 72.57 kg

DRUGS (8)
  1. LIDOCAINE PATCH [Suspect]
     Active Substance: LIDOCAINE
     Indication: Product used for unknown indication
  2. LUMRYZ [Suspect]
     Active Substance: SODIUM OXYBATE
     Indication: Narcolepsy
     Dates: start: 20240502, end: 2024
  3. LUMRYZ [Suspect]
     Active Substance: SODIUM OXYBATE
     Dates: start: 20240619, end: 2024
  4. XANAX [Concomitant]
     Active Substance: ALPRAZOLAM
  5. PRENERGAN [PROMETHAZINE] [Concomitant]
  6. OMEPRAZOLE [Concomitant]
     Active Substance: OMEPRAZOLE
  7. LEXAPRO [Concomitant]
     Active Substance: ESCITALOPRAM OXALATE
  8. MORPHINE [Concomitant]
     Active Substance: MORPHINE

REACTIONS (14)
  - Pericarditis [Unknown]
  - Cardiac disorder [Unknown]
  - Ligament rupture [Unknown]
  - Foot operation [Unknown]
  - Middle insomnia [Unknown]
  - Abnormal dreams [Unknown]
  - Pancreatic disorder [Unknown]
  - Rash [Unknown]
  - Diarrhoea [Unknown]
  - Nausea [Unknown]
  - Anxiety [Unknown]
  - Enuresis [Unknown]
  - Somnolence [Unknown]
  - Hypersensitivity [Unknown]
